FAERS Safety Report 5912261-8 (Version None)
Quarter: 2008Q4

REPORT INFORMATION
  Report Type: 
  Country: None (occurrence: None)
  Receive Date: 20081008
  Receipt Date: 20080930
  Transmission Date: 20090506
  Serious: Yes (Disabling)
  Sender: FDA-Public Use
  Company Number: B0539338A

PATIENT
  Age: 60 Year
  Sex: Female
  Weight: 67 kg

DRUGS (5)
  1. ROSIGLITAZONE [Suspect]
     Route: 048
     Dates: start: 20061101, end: 20080801
  2. METFORMIN HCL [Concomitant]
     Dosage: 500MG PER DAY
     Route: 048
     Dates: start: 20040101
  3. TIMOLOL [Concomitant]
     Indication: INTERMEDIATE UVEITIS
     Dates: start: 20010101
  4. PRED FORTE [Concomitant]
     Indication: INTERMEDIATE UVEITIS
     Route: 031
     Dates: start: 20010101
  5. BETAMETHASONE [Concomitant]
     Indication: INTERMEDIATE UVEITIS
     Dates: start: 20010101

REACTIONS (2)
  - MACULOPATHY [None]
  - VISUAL ACUITY REDUCED [None]
